FAERS Safety Report 20944959 (Version 1)
Quarter: 2022Q2

REPORT INFORMATION
  Report Type: Spontaneous
  Country: US (occurrence: None)
  Receive Date: 20220609
  Receipt Date: 20220609
  Transmission Date: 20220720
  Serious: Yes (Hospitalization)
  Sender: FDA-Public Use
  Company Number: None

PATIENT
  Age: 39 Year
  Sex: Female

DRUGS (1)
  1. NUCALA [Suspect]
     Active Substance: MEPOLIZUMAB
     Indication: Asthma
     Dosage: 100,G EVERY 28 DAYS SUBCUTANEOUS?
     Route: 058
     Dates: start: 202202

REACTIONS (1)
  - Asthma [None]

NARRATIVE: CASE EVENT DATE: 20220411
